FAERS Safety Report 25883958 (Version 1)
Quarter: 2025Q4

REPORT INFORMATION
  Report Type: Spontaneous
  Country: GB (occurrence: None)
  Receive Date: 20251003
  Receipt Date: 20251003
  Transmission Date: 20260118
  Serious: Yes (Life-Threatening, Hospitalization, Disabling, Other)
  Sender: FDA-CTU
  Company Number: None

PATIENT
  Age: 39 Year
  Sex: Male
  Weight: 89 kg

DRUGS (1)
  1. BETNOVATE [Suspect]
     Active Substance: BETAMETHASONE
     Indication: Eczema
     Dosage: OTHER FREQUENCY : EVERY 3 DAYS;?
     Route: 061

REACTIONS (7)
  - Steroid dependence [None]
  - Withdrawal syndrome [None]
  - Fatigue [None]
  - Insomnia [None]
  - Application site pain [None]
  - Skin weeping [None]
  - Application site exfoliation [None]

NARRATIVE: CASE EVENT DATE: 19200901
